FAERS Safety Report 4604934-4 (Version None)
Quarter: 2005Q1

REPORT INFORMATION
  Report Type: 
  Country: None (occurrence: None)
  Receive Date: 20050310
  Receipt Date: 20050310
  Transmission Date: 20050727
  Serious: Yes (Life-Threatening, Hospitalization)
  Sender: FDA-Public Use
  Company Number: None

PATIENT
  Sex: Female

DRUGS (1)
  1. DOXORUBICIN HCL [Suspect]
     Indication: CHEMOTHERAPY
     Dosage: 82-86 MG INTRAVENOUS
     Route: 042
     Dates: start: 20031017, end: 20040206

REACTIONS (1)
  - CARDIOMYOPATHY [None]
